FAERS Safety Report 8448943-6 (Version None)
Quarter: 2012Q2

REPORT INFORMATION
  Report Type: 
  Country: None (occurrence: None)
  Receive Date: 20120619
  Receipt Date: 20120613
  Transmission Date: 20120825
  Serious: Yes (Hospitalization)
  Sender: FDA-Public Use
  Company Number: IN-GLAXOSMITHKLINE-B0808850A

PATIENT
  Age: 8 Year
  Sex: Female

DRUGS (5)
  1. SALMETEROL + FLUTICASONE [Concomitant]
     Indication: ASTHMA
     Route: 055
  2. HYDROCORTISONE [Concomitant]
  3. ALBUTEROL [Suspect]
     Indication: ASTHMA
     Route: 055
  4. AMOXICILLIN AND CLAVULANATE POTASSIUM [Concomitant]
     Route: 042
  5. SALBUTAMOL + IPRATROPIUM BROMIDE [Concomitant]

REACTIONS (9)
  - SPEECH DISORDER [None]
  - WHEEZING [None]
  - METABOLIC ACIDOSIS [None]
  - COUGH [None]
  - DYSPNOEA [None]
  - CONDITION AGGRAVATED [None]
  - TACHYPNOEA [None]
  - TOXICITY TO VARIOUS AGENTS [None]
  - CHEST DISCOMFORT [None]
